FAERS Safety Report 7956614-5 (Version None)
Quarter: 2011Q4

REPORT INFORMATION
  Report Type: 
  Country: None (occurrence: None)
  Receive Date: 20111205
  Receipt Date: 20111201
  Transmission Date: 20120403
  Serious: Yes (Death, Hospitalization)
  Sender: FDA-Public Use
  Company Number: PHEH2011US010494

PATIENT
  Sex: Female
  Weight: 88 kg

DRUGS (2)
  1. TASIGNA [Suspect]
     Indication: LYMPHOCYTOSIS
     Dosage: 2 CAPSULES TWICE DAILY, 600 MG DAILY
     Route: 048
     Dates: start: 20111115
  2. TASIGNA [Suspect]
     Indication: CHRONIC MYELOID LEUKAEMIA

REACTIONS (8)
  - MICROCYTIC ANAEMIA [None]
  - ACUTE RESPIRATORY DISTRESS SYNDROME [None]
  - ASTHENIA [None]
  - ACUTE LUNG INJURY [None]
  - DYSPNOEA [None]
  - NORMOCHROMIC NORMOCYTIC ANAEMIA [None]
  - TACHYPNOEA [None]
  - THROMBOCYTOPENIA [None]
